FAERS Safety Report 13157928 (Version 1)
Quarter: 2017Q1

REPORT INFORMATION
  Report Type: Spontaneous
  Country: US (occurrence: US)
  Receive Date: 20170124
  Receipt Date: 20170124
  Transmission Date: 20170428
  Serious: Yes (Other)
  Sender: FDA-Public Use
  Company Number: None

PATIENT
  Age: 59 Year
  Sex: Male
  Weight: 90 kg

DRUGS (15)
  1. NORVIR [Concomitant]
     Active Substance: RITONAVIR
  2. VITAMIN D [Concomitant]
     Active Substance: CHOLECALCIFEROL
  3. TESTOSTERONE. [Concomitant]
     Active Substance: TESTOSTERONE
  4. LOSARTIN [Concomitant]
     Active Substance: LOSARTAN
  5. CARNITINE [Concomitant]
     Active Substance: CARNITINE
  6. TEROZOSIN [Concomitant]
  7. DESCOVY [Concomitant]
     Active Substance: EMTRICITABINE\TENOFOVIR ALAFENAMIDE FUMARATE
  8. INTELLENCE [Concomitant]
  9. CELEBREX [Concomitant]
     Active Substance: CELECOXIB
  10. Q10 [Concomitant]
  11. ESZOPICLONE. [Suspect]
     Active Substance: ESZOPICLONE
     Indication: INSOMNIA
     Dosage: ?          QUANTITY:1 TABLET(S);?
     Route: 048
     Dates: start: 20170113, end: 20170122
  12. PREZISTA [Concomitant]
     Active Substance: DARUNAVIR ETHANOLATE
  13. LUNESTA [Concomitant]
     Active Substance: ESZOPICLONE
  14. PERCOCET [Concomitant]
     Active Substance: ACETAMINOPHEN\OXYCODONE HYDROCHLORIDE
  15. MULTIVITAMIN [Concomitant]
     Active Substance: VITAMINS

REACTIONS (3)
  - Hypersomnia [None]
  - Product substitution issue [None]
  - Drug effect increased [None]

NARRATIVE: CASE EVENT DATE: 20170118
